FAERS Safety Report 19709891 (Version 1)
Quarter: 2021Q3

REPORT INFORMATION
  Report Type: Report from Study
  Country: CN (occurrence: CN)
  Receive Date: 20210817
  Receipt Date: 20210817
  Transmission Date: 20211014
  Serious: Yes (Other)
  Sender: FDA-Public Use
  Company Number: NVSC2021CN177964

PATIENT
  Age: 66 Year
  Sex: Female
  Weight: 60 kg

DRUGS (1)
  1. ZYKADIA [Suspect]
     Active Substance: CERITINIB
     Indication: NON-SMALL CELL LUNG CANCER
     Dosage: 450 MG, QD
     Route: 048
     Dates: start: 20200313

REACTIONS (9)
  - Cerebral calcification [Unknown]
  - Lung neoplasm [Unknown]
  - Lymphadenopathy [Unknown]
  - Pneumonia [Unknown]
  - Pleural effusion [Unknown]
  - Metastases to bone [Not Recovered/Not Resolved]
  - Pleural thickening [Unknown]
  - Neurodegenerative disorder [Unknown]
  - Pain [Not Recovered/Not Resolved]

NARRATIVE: CASE EVENT DATE: 20210704
